FAERS Safety Report 8022429-5 (Version None)
Quarter: 2012Q1

REPORT INFORMATION
  Report Type: 
  Country: None (occurrence: None)
  Receive Date: 20120104
  Receipt Date: 20120103
  Transmission Date: 20120608
  Serious: No
  Sender: FDA-Public Use
  Company Number: US-PFIZER INC-2011304783

PATIENT
  Sex: Female
  Weight: 77.098 kg

DRUGS (1)
  1. SERTRALINE HYDROCHLORIDE [Suspect]
     Indication: DEPRESSION
     Dosage: 150 MG, 1X/DAY
     Route: 048
     Dates: start: 20100401

REACTIONS (4)
  - DIZZINESS [None]
  - NAUSEA [None]
  - HEADACHE [None]
  - DYSGEUSIA [None]
